FAERS Safety Report 16932246 (Version 1)
Quarter: 2019Q4

REPORT INFORMATION
  Report Type: Report from Study
  Country: CA (occurrence: CA)
  Receive Date: 20191017
  Receipt Date: 20191017
  Transmission Date: 20200122
  Serious: Yes (Hospitalization)
  Sender: FDA-Public Use
  Company Number: CA-JNJFOC-20191011958

PATIENT
  Age: 85 Year
  Sex: Female
  Weight: 65.8 kg

DRUGS (1)
  1. REMICADE [Suspect]
     Active Substance: INFLIXIMAB
     Indication: RHEUMATOID ARTHRITIS
     Route: 042
     Dates: start: 20030424

REACTIONS (2)
  - Pyelonephritis [Recovered/Resolved]
  - Listeriosis [Recovered/Resolved]

NARRATIVE: CASE EVENT DATE: 20190912
